FAERS Safety Report 11663338 (Version 1)
Quarter: 2015Q4

REPORT INFORMATION
  Report Type: Spontaneous
  Country: US (occurrence: US)
  Receive Date: 20151027
  Receipt Date: 20151027
  Transmission Date: 20160304
  Serious: No
  Sender: FDA-Public Use
  Company Number: US-SUN PHARMACEUTICAL INDUSTRIES LTD-2015SUN01978

PATIENT
  Age: 43 Year
  Sex: Female

DRUGS (4)
  1. KIT FOR THE PREPARATION OF TECHNETIUM TC 99M MEDRONATE [Suspect]
     Active Substance: TECHNETIUM TC-99M MEDRONATE
     Indication: MUSCULOSKELETAL PAIN
     Dosage: 25 MCI, OD (ONCE)
     Route: 042
     Dates: start: 20150129, end: 20150129
  2. BENADRYL [Concomitant]
     Active Substance: DIPHENHYDRAMINE HYDROCHLORIDE
     Dosage: 50 MG, EVERY 4 HOURS PER DAY
  3. ATAVAN [Concomitant]
  4. ZYRTEC [Concomitant]
     Active Substance: CETIRIZINE HYDROCHLORIDE

REACTIONS (4)
  - Rash [Recovered/Resolved]
  - Hypersensitivity [None]
  - Pruritus [None]
  - Erythema [Recovered/Resolved]

NARRATIVE: CASE EVENT DATE: 20150129
